FAERS Safety Report 9925510 (Version 1)
Quarter: 2014Q1

REPORT INFORMATION
  Report Type: Spontaneous
  Country: FR (occurrence: FR)
  Receive Date: 20140226
  Receipt Date: 20140226
  Transmission Date: 20141002
  Serious: Yes (Hospitalization)
  Sender: FDA-Public Use
  Company Number: FR-ABBVIE-14P-056-1203638-00

PATIENT
  Age: 14 Year
  Sex: Female

DRUGS (4)
  1. HUMIRA [Suspect]
     Indication: JUVENILE IDIOPATHIC ARTHRITIS
     Route: 058
     Dates: start: 201212
  2. HUMIRA [Suspect]
     Dates: start: 201207, end: 201212
  3. HUMIRA [Suspect]
     Dates: start: 201002, end: 201202
  4. APRANAX [Suspect]
     Indication: JUVENILE IDIOPATHIC ARTHRITIS
     Route: 048
     Dates: start: 201210, end: 2013

REACTIONS (4)
  - Renal colic [Recovered/Resolved]
  - Renal colic [Recovered/Resolved]
  - Renal colic [Recovered/Resolved]
  - Nephrolithiasis [Recovered/Resolved with Sequelae]
